APPROVED DRUG PRODUCT: FOSFOMYCIN TROMETHAMINE
Active Ingredient: FOSFOMYCIN TROMETHAMINE
Strength: EQ 3GM BASE/PACKET
Dosage Form/Route: FOR SOLUTION;ORAL
Application: A217608 | Product #001 | TE Code: AA
Applicant: AUROBINDO PHARMA LTD
Approved: Nov 14, 2025 | RLD: No | RS: No | Type: RX